FAERS Safety Report 14023209 (Version 1)
Quarter: 2017Q3

REPORT INFORMATION
  Report Type: Spontaneous
  Country: DE (occurrence: DE)
  Receive Date: 20170929
  Receipt Date: 20170929
  Transmission Date: 20171128
  Serious: Yes (Hospitalization, Other)
  Sender: FDA-Public Use
  Company Number: DE-SHIRE-DE201722749

PATIENT

DRUGS (1)
  1. REVESTIVE [Suspect]
     Active Substance: TEDUGLUTIDE
     Indication: SHORT-BOWEL SYNDROME
     Dosage: 0.2 ML, 1X/DAY:QD
     Route: 058
     Dates: start: 20160831, end: 20170911

REACTIONS (2)
  - Sepsis [Unknown]
  - Weight decreased [Unknown]

NARRATIVE: CASE EVENT DATE: 20170908
